FAERS Safety Report 6963087-8 (Version None)
Quarter: 2010Q3

REPORT INFORMATION
  Report Type: 
  Country: None (occurrence: None)
  Receive Date: 20100902
  Receipt Date: 20100823
  Transmission Date: 20110219
  Serious: Yes (Other)
  Sender: FDA-Public Use
  Company Number: US-CELGENEUS-163-21880-10072586

PATIENT
  Sex: Male
  Weight: 91.8 kg

DRUGS (14)
  1. REVLIMID [Suspect]
     Route: 048
     Dates: start: 20100603, end: 20100623
  2. REVLIMID [Suspect]
     Route: 048
     Dates: start: 20100701, end: 20100101
  3. COREG CR [Concomitant]
     Indication: HYPERTENSION
     Route: 048
  4. COREG CR [Concomitant]
     Route: 048
  5. LISINOPRIL [Concomitant]
     Indication: HYPERTENSION
     Route: 065
  6. LISINOPRIL [Concomitant]
     Route: 048
  7. CRESTOR [Concomitant]
     Route: 065
  8. CRESTOR [Concomitant]
     Route: 048
  9. ZANTAC [Concomitant]
     Indication: PRODUCT USED FOR UNKNOWN INDICATION
     Route: 065
  10. FISH OIL [Concomitant]
     Indication: PRODUCT USED FOR UNKNOWN INDICATION
     Route: 065
  11. ALEVE (CAPLET) [Concomitant]
     Indication: PAIN
     Route: 048
  12. ASPIRIN [Concomitant]
     Route: 065
  13. ASPIRIN [Concomitant]
     Route: 048
  14. MULTIVITAMIN ESSENTIALS [Concomitant]
     Indication: PRODUCT USED FOR UNKNOWN INDICATION
     Route: 065

REACTIONS (2)
  - HYPERTHYROIDISM [None]
  - WHITE BLOOD CELL COUNT DECREASED [None]
